FAERS Safety Report 6883113-4 (Version None)
Quarter: 2010Q3

REPORT INFORMATION
  Report Type: 
  Country: None (occurrence: None)
  Receive Date: 20100727
  Receipt Date: 20100712
  Transmission Date: 20110219
  Serious: Yes (Death, Hospitalization)
  Sender: FDA-Public Use
  Company Number: 2009EU000278

PATIENT
  Age: 59 Year
  Sex: Male

DRUGS (8)
  1. PROGRAF [Suspect]
     Dates: start: 20080401, end: 20081019
  2. VALGANCICLOVIR HCL [Suspect]
     Dosage: 450 MG, ORAL
     Route: 048
     Dates: start: 20080501, end: 20081018
  3. CELLCEPT [Suspect]
     Dosage: 1 G, ORAL
     Route: 048
     Dates: start: 20080401, end: 20081021
  4. HYDROCORTISONE (HYDROCORTISONE ACETATE0 [Suspect]
     Dosage: 10 MG BID
     Dates: start: 20081001
  5. PREDNISONE [Concomitant]
  6. CACIT D3 (COLECALCIFEROL, CALCIUM CARBONATE) [Concomitant]
  7. MAGNE-B6 (PYRIDOXINE HYDROCHLORIDE, MAGNESIUM LACTATE) [Concomitant]
  8. INIPOMP (PANTOPRAZOLE SODIUM) [Concomitant]

REACTIONS (5)
  - ACUTE LEUKAEMIA [None]
  - ARRHYTHMIA [None]
  - DISSEMINATED INTRAVASCULAR COAGULATION [None]
  - HAEMATOMA [None]
  - HYPERKALAEMIA [None]
